FAERS Safety Report 15686838 (Version 1)
Quarter: 2018Q4

REPORT INFORMATION
  Report Type: Spontaneous
  Country: IR (occurrence: IR)
  Receive Date: 20181204
  Receipt Date: 20181204
  Transmission Date: 20190205
  Serious: Yes (Hospitalization)
  Sender: FDA-Public Use
  Company Number: PHHY2018IR167263

PATIENT
  Age: 78 Year
  Sex: Female

DRUGS (1)
  1. PIPERACILLIN AND TAZOBACTAM [Suspect]
     Active Substance: PIPERACILLIN SODIUM\TAZOBACTAM SODIUM
     Indication: INFECTION
     Dosage: 4.5 MG, Q8H
     Route: 065

REACTIONS (7)
  - Osteomyelitis [Recovered/Resolved]
  - Joint destruction [Recovered/Resolved]
  - Swelling [Recovered/Resolved]
  - Musculoskeletal disorder [Recovered/Resolved]
  - Pelvic pain [Recovered/Resolved]
  - Pseudomonas infection [Recovered/Resolved]
  - Gait disturbance [Recovered/Resolved]
